FAERS Safety Report 17606509 (Version 2)
Quarter: 2020Q4

REPORT INFORMATION
  Report Type: Spontaneous
  Country: CA (occurrence: CA)
  Receive Date: 20200331
  Receipt Date: 20201115
  Transmission Date: 20210113
  Serious: Yes (Other)
  Sender: FDA-Public Use
  Company Number: CA-SAMSUNG BIOEPIS-SB-2020-10543

PATIENT
  Age: 34 Year
  Sex: Female

DRUGS (6)
  1. ETHINYL ESTRADIOL/ LEVONORGESTREL [Concomitant]
     Route: 065
  2. AZATHIOPRINE. [Concomitant]
     Active Substance: AZATHIOPRINE
     Indication: PRODUCT USED FOR UNKNOWN INDICATION
     Route: 065
  3. INFLIXIMAB [Suspect]
     Active Substance: INFLIXIMAB
     Route: 042
  4. ETHINYL ESTRADIOL/ LEVONORGESTREL [Concomitant]
     Indication: PRODUCT USED FOR UNKNOWN INDICATION
     Route: 065
  5. INFLIXIMAB [Suspect]
     Active Substance: INFLIXIMAB
     Indication: CROHN^S DISEASE
     Route: 042
  6. VITAMIN D [Concomitant]
     Active Substance: VITAMIN D NOS
     Indication: PRODUCT USED FOR UNKNOWN INDICATION
     Dosage: UNKNOWN
     Route: 065

REACTIONS (11)
  - Nasopharyngitis [Recovered/Resolved]
  - Rhinorrhoea [Recovered/Resolved]
  - Incorrect dose administered [Recovered/Resolved]
  - Off label use [Recovered/Resolved]
  - Blood pressure fluctuation [Recovered/Resolved]
  - Rash erythematous [Recovered/Resolved]
  - Blood pressure increased [Recovered/Resolved]
  - Drug level below therapeutic [Recovered/Resolved]
  - Condition aggravated [Recovered/Resolved]
  - Cough [Recovered/Resolved]
  - Product use issue [Recovered/Resolved]
